FAERS Safety Report 13008048 (Version 1)
Quarter: 2016Q4

REPORT INFORMATION
  Report Type: Spontaneous
  Country: US (occurrence: US)
  Receive Date: 20161208
  Receipt Date: 20161208
  Transmission Date: 20170207
  Serious: Yes (Other)
  Sender: FDA-Public Use
  Company Number: US-CIPLA LTD.-2016US22839

PATIENT

DRUGS (1)
  1. GABAPENTIN. [Suspect]
     Active Substance: GABAPENTIN
     Indication: CARPAL TUNNEL SYNDROME
     Dosage: 100 MG, QID
     Route: 048

REACTIONS (1)
  - Lactose intolerance [Not Recovered/Not Resolved]

NARRATIVE: CASE EVENT DATE: 201609
